FAERS Safety Report 11098725 (Version 1)
Quarter: 2015Q2

REPORT INFORMATION
  Report Type: Report from Study
  Country: NI (occurrence: NI)
  Receive Date: 20150507
  Receipt Date: 20150507
  Transmission Date: 20150821
  Serious: Yes (Death, Other)
  Sender: FDA-Public Use
  Company Number: PHHY2015NI054977

PATIENT
  Age: 50 Year
  Sex: Male

DRUGS (1)
  1. GLIVEC [Suspect]
     Active Substance: IMATINIB MESYLATE
     Indication: GASTROINTESTINAL STROMAL TUMOUR
     Dosage: 600 MG, UNK
     Route: 065

REACTIONS (4)
  - Gastrointestinal stromal tumour [Unknown]
  - Malaise [Unknown]
  - Death [Fatal]
  - Malignant neoplasm progression [Unknown]

NARRATIVE: CASE EVENT DATE: 20141201
